FAERS Safety Report 6116201-0 (Version None)
Quarter: 2009Q1

REPORT INFORMATION
  Report Type: 
  Country: None (occurrence: None)
  Receive Date: 20090314
  Receipt Date: 20081202
  Transmission Date: 20090719
  Serious: No
  Sender: FDA-Public Use
  Company Number: US-ABBOTT-08P-163-0490699-00

PATIENT
  Sex: Female

DRUGS (3)
  1. HUMIRA [Suspect]
     Indication: JUVENILE ARTHRITIS
     Dosage: 40 MILLIGRAMS EVERY OTHER WEEK  ON IT FOR 1-2 YEARS ONGOING
  2. CELECOXIB [Concomitant]
     Indication: ARTHRITIS
  3. DEPO-PROVERA [Concomitant]
     Indication: CONTRACEPTION

REACTIONS (1)
  - NEUROPATHY PERIPHERAL [None]
